FAERS Safety Report 12419973 (Version 1)
Quarter: 2016Q2

REPORT INFORMATION
  Report Type: Spontaneous
  Country: GB (occurrence: GB)
  Receive Date: 20160531
  Receipt Date: 20160531
  Transmission Date: 20160815
  Serious: Yes (Other)
  Sender: FDA-Public Use
  Company Number: GB-PFIZER INC-2016277628

PATIENT
  Age: 51 Year
  Sex: Female
  Weight: 96 kg

DRUGS (10)
  1. AUDEN MCKENZIE ALVERINE [Concomitant]
     Dosage: 1 DF, 3X/DAY
     Dates: start: 20160210
  2. DEPO-MEDRONE [Suspect]
     Active Substance: METHYLPREDNISOLONE
     Dosage: USE AS DIRECTED
     Dates: start: 20160413
  3. CLARITHROMYCIN. [Concomitant]
     Active Substance: CLARITHROMYCIN
     Dosage: 1 DF, EVERY 12 HOURS
     Dates: start: 20160401, end: 20160408
  4. CITALOPRAM [Concomitant]
     Active Substance: CITALOPRAM HYDROBROMIDE
     Dosage: USE AS DIRECTED
     Dates: start: 20160126
  5. DEPO-MEDRONE WITH LIDOCAINE [Suspect]
     Active Substance: LIDOCAINE HYDROCHLORIDE\METHYLPREDNISOLONE ACETATE
     Route: 014
     Dates: start: 20160414
  6. PROCHLORPERAZINE. [Concomitant]
     Active Substance: PROCHLORPERAZINE
     Dosage: AT 1 DF THREE TIMES DAILY AS NEEDED
     Dates: start: 20150115
  7. PROPRANOLOL [Concomitant]
     Active Substance: PROPRANOLOL\PROPRANOLOL HYDROCHLORIDE
     Dosage: 1 DF, 1X/DAY
     Dates: start: 20160126
  8. ESTRADIOL. [Concomitant]
     Active Substance: ESTRADIOL
     Dosage: 1 DF, 2X/WEEK
     Dates: start: 20150430
  9. OMEPRAZOLE. [Concomitant]
     Active Substance: OMEPRAZOLE
     Dosage: UNK, DAILY
     Dates: start: 20150724
  10. HYDROCORTISONE. [Concomitant]
     Active Substance: HYDROCORTISONE
     Dosage: APPLY AS DIRECTED
     Dates: start: 20150115

REACTIONS (2)
  - Erythema [Recovered/Resolved]
  - Swelling face [Recovered/Resolved]

NARRATIVE: CASE EVENT DATE: 20160414
